FAERS Safety Report 6772526-7 (Version None)
Quarter: 2010Q2

REPORT INFORMATION
  Report Type: 
  Country: None (occurrence: None)
  Receive Date: 20100616
  Receipt Date: 20091013
  Transmission Date: 20101027
  Serious: No
  Sender: FDA-Public Use
  Company Number: US-ASTRAZENECA-2009SE19904

PATIENT
  Age: 70 Year
  Sex: Female
  Weight: 58.1 kg

DRUGS (4)
  1. PULMICORT RESPULES [Suspect]
     Indication: CHRONIC OBSTRUCTIVE PULMONARY DISEASE
     Route: 055
     Dates: start: 20091003, end: 20091010
  2. BENICAR [Concomitant]
  3. CARVEDILOL [Concomitant]
  4. SIMVASTATIN [Concomitant]

REACTIONS (6)
  - DYSGEUSIA [None]
  - EATING DISORDER [None]
  - HYPOAESTHESIA ORAL [None]
  - NAUSEA [None]
  - THROAT TIGHTNESS [None]
  - WEIGHT DECREASED [None]
